FAERS Safety Report 7604075-8 (Version None)
Quarter: 2011Q3

REPORT INFORMATION
  Report Type: 
  Country: None (occurrence: None)
  Receive Date: 20110712
  Receipt Date: 20110705
  Transmission Date: 20111222
  Serious: Yes (Death, Hospitalization)
  Sender: FDA-Public Use
  Company Number: PH-ASTRAZENECA-2011SE34100

PATIENT
  Sex: Male

DRUGS (1)
  1. IRESSA [Suspect]
     Route: 048

REACTIONS (2)
  - THROMBOCYTOPENIA [None]
  - DISEASE PROGRESSION [None]
